FAERS Safety Report 5421736-X (Version None)
Quarter: 2007Q3

REPORT INFORMATION
  Report Type: 
  Country: None (occurrence: None)
  Receive Date: 20070820
  Receipt Date: 20070806
  Transmission Date: 20080115
  Serious: Yes (Hospitalization)
  Sender: FDA-Public Use
  Company Number: CIP07001537

PATIENT
  Age: 79 Year
  Sex: Female

DRUGS (8)
  1. ACTONEL [Suspect]
     Dosage: 35 MG, 1/WEEK, ORAL; 35 MG ONCE WEEKLY, ORAL
     Route: 048
     Dates: start: 20040101, end: 20060101
  2. ACTONEL [Suspect]
     Dosage: 35 MG, 1/WEEK, ORAL; 35 MG ONCE WEEKLY, ORAL
     Route: 048
     Dates: start: 20070401
  3. ZOCOR [Concomitant]
  4. LEXAPRO [Concomitant]
  5. SINGULAIR [Concomitant]
  6. VITAMIN B12 [Concomitant]
  7. KETOPROFEN [Concomitant]
  8. HORMONES AND RELATED AGENTS [Concomitant]

REACTIONS (4)
  - ALOPECIA [None]
  - ANAEMIA [None]
  - MYOCARDIAL INFARCTION [None]
  - PAIN IN JAW [None]
